FAERS Safety Report 10596867 (Version 2)
Quarter: 2014Q4

REPORT INFORMATION
  Report Type: Spontaneous
  Country: US (occurrence: US)
  Receive Date: 20141120
  Receipt Date: 20141120
  Transmission Date: 20150529
  Serious: Yes (Other)
  Sender: FDA-Public Use
  Company Number: US-ASTRAZENECA-2014SE86318

PATIENT
  Sex: Male
  Weight: 89.8 kg

DRUGS (7)
  1. SYMBICORT [Suspect]
     Active Substance: BUDESONIDE\FORMOTEROL FUMARATE DIHYDRATE
     Indication: CHRONIC OBSTRUCTIVE PULMONARY DISEASE
     Dosage: 80/4.5 MCG, 2 PUFFS, BID
     Route: 055
  2. SYMBICORT [Suspect]
     Active Substance: BUDESONIDE\FORMOTEROL FUMARATE DIHYDRATE
     Indication: CHRONIC OBSTRUCTIVE PULMONARY DISEASE
     Dosage: AGAINST PRESCRIPTION, AS REQUIRED
     Route: 055
  3. OTC (OVER THE COUNTER) GENERIC ANTIHISTAMINE [Concomitant]
     Route: 048
  4. SYMBICORT [Suspect]
     Active Substance: BUDESONIDE\FORMOTEROL FUMARATE DIHYDRATE
     Indication: BRONCHITIS CHRONIC
     Dosage: 80/4.5 MCG, 2 PUFFS, BID
     Route: 055
  5. GENERIC TAGAMET [Concomitant]
     Indication: ULCER
     Route: 048
  6. GENERIC OTC MUCINEX [Concomitant]
     Indication: NASAL CONGESTION
     Route: 048
  7. SYMBICORT [Suspect]
     Active Substance: BUDESONIDE\FORMOTEROL FUMARATE DIHYDRATE
     Indication: BRONCHITIS CHRONIC
     Dosage: AGAINST PRESCRIPTION, AS REQUIRED
     Route: 055

REACTIONS (2)
  - Cataract [Unknown]
  - Intentional product misuse [Unknown]
